FAERS Safety Report 9273698 (Version 1)
Quarter: 2013Q2

REPORT INFORMATION
  Report Type: Spontaneous
  Country: MX (occurrence: MX)
  Receive Date: 20130506
  Receipt Date: 20130506
  Transmission Date: 20140414
  Serious: Yes (Death)
  Sender: FDA-Public Use
  Company Number: MX-GENZYME-POMP-1002970

PATIENT
  Age: 4 Month
  Sex: Male

DRUGS (1)
  1. MYOZYME [Suspect]
     Indication: GLYCOGEN STORAGE DISEASE TYPE II
     Dosage: 20 MG/KG, ONCE
     Route: 042
     Dates: start: 20130426, end: 20130426

REACTIONS (2)
  - Death [Fatal]
  - Pyrexia [Unknown]
